FAERS Safety Report 19472843 (Version 1)
Quarter: 2021Q2

REPORT INFORMATION
  Report Type: Spontaneous
  Country: US (occurrence: US)
  Receive Date: 20210629
  Receipt Date: 20210629
  Transmission Date: 20210717
  Serious: Yes (Hospitalization)
  Sender: FDA-Public Use
  Company Number: US-MYLANLABS-2021M1038526

PATIENT
  Age: 57 Year
  Sex: Male

DRUGS (6)
  1. DORNASE ALFA. [Concomitant]
     Active Substance: DORNASE ALFA
     Indication: PRODUCT USED FOR UNKNOWN INDICATION
     Dosage: UNK
     Route: 065
  2. AZTREONAM. [Concomitant]
     Active Substance: AZTREONAM
     Indication: PNEUMONIA PSEUDOMONAL
     Dosage: UNK
     Route: 055
  3. AZITHROMYCIN ANHYDROUS. [Concomitant]
     Active Substance: AZITHROMYCIN ANHYDROUS
     Indication: PRODUCT USED FOR UNKNOWN INDICATION
     Dosage: UNK
     Route: 065
  4. TOBRAMYCIN. [Suspect]
     Active Substance: TOBRAMYCIN
     Indication: INHALATION THERAPY
     Dosage: 300 MILLIGRAM, BID, ON DAY 25 OF 28 DAYS THERAPY DURING HOSPITALIZATION DUE TO ACUTE KIDNEY INJURY
     Route: 055
  5. TOBRAMYCIN. [Suspect]
     Active Substance: TOBRAMYCIN
     Indication: PNEUMONIA PSEUDOMONAL
     Dosage: OVER 2 YEARS
     Route: 055
  6. AZTREONAM. [Concomitant]
     Active Substance: AZTREONAM
     Indication: INHALATION THERAPY

REACTIONS (3)
  - Vestibular disorder [Unknown]
  - Acute kidney injury [Recovering/Resolving]
  - Toxicity to various agents [Recovering/Resolving]
